FAERS Safety Report 9726191 (Version 4)
Quarter: 2014Q4

REPORT INFORMATION
  Report Type: Spontaneous
  Country: US (occurrence: US)
  Receive Date: 20131203
  Receipt Date: 20141010
  Transmission Date: 20150529
  Serious: Yes (Hospitalization, Other)
  Sender: FDA-Public Use
  Company Number: US-BAYER-2013-144981

PATIENT
  Age: 24 Year
  Sex: Female
  Weight: 63.49 kg

DRUGS (7)
  1. PERCOCET [OXYCODONE HYDROCHLORIDE,OXYCODONE TEREPHTHALATE,PARACETA [Concomitant]
  2. PROMETHAZINE [Concomitant]
     Active Substance: PROMETHAZINE\PROMETHAZINE HYDROCHLORIDE
  3. LEXAPRO [Concomitant]
     Active Substance: ESCITALOPRAM OXALATE
  4. IMPLANON [Suspect]
     Active Substance: ETONOGESTREL
     Dosage: UNK
     Dates: start: 2009
  5. MIRENA [Suspect]
     Active Substance: LEVONORGESTREL
     Dosage: 20 MCG/24HR, CONT
     Route: 015
     Dates: start: 2008, end: 201212
  6. DOXYCYCLINE HYCLATE. [Concomitant]
     Active Substance: DOXYCYCLINE HYCLATE
  7. MOTRIN [Concomitant]
     Active Substance: IBUPROFEN

REACTIONS (12)
  - Uterine perforation [None]
  - Device issue [None]
  - Pain [None]
  - Scar [None]
  - Depression [None]
  - Fallopian tube perforation [None]
  - Injury [None]
  - Drug ineffective [None]
  - Menorrhagia [None]
  - Anxiety [None]
  - Emotional distress [None]
  - Ectopic pregnancy [None]

NARRATIVE: CASE EVENT DATE: 200811
